FAERS Safety Report 19079727 (Version 1)
Quarter: 2021Q1

REPORT INFORMATION
  Report Type: Spontaneous
  Country: US (occurrence: US)
  Receive Date: 20210331
  Receipt Date: 20210331
  Transmission Date: 20210420
  Serious: No
  Sender: FDA-Public Use
  Company Number: US-BAYER-2021-110785

PATIENT

DRUGS (23)
  1. SEPTRA [Concomitant]
     Active Substance: SULFAMETHOXAZOLE\TRIMETHOPRIM
     Indication: URTICARIA
     Dosage: UNK
  2. TYLOXAPOL [Concomitant]
     Active Substance: TYLOXAPOL
     Indication: PRURITUS
     Dosage: UNK
  3. SKELAXIN [Concomitant]
     Active Substance: METAXALONE
     Dosage: UNK
     Route: 048
  4. VALDECOXIB [Concomitant]
     Active Substance: VALDECOXIB
     Indication: PRURITUS
  5. MORPHINE [Concomitant]
     Active Substance: MORPHINE
     Indication: URTICARIA
     Dosage: UNK
  6. THORAZINE [Concomitant]
     Active Substance: CHLORPROMAZINE
     Dosage: UNK
  7. VALDECOXIB [Concomitant]
     Active Substance: VALDECOXIB
     Indication: URTICARIA
     Dosage: UNK
  8. CIPRO [Suspect]
     Active Substance: CIPROFLOXACIN HYDROCHLORIDE
     Dosage: UNK
  9. DARVOCET A500 [Concomitant]
     Active Substance: ACETAMINOPHEN\PROPOXYPHENE NAPSYLATE
     Indication: URTICARIA
     Dosage: UNK
  10. HYDROCODONE BITARTRATE AND ACETAMINOPHEN [Concomitant]
     Active Substance: ACETAMINOPHEN\HYDROCODONE BITARTRATE
     Indication: PRURITUS
     Dosage: UNK
  11. SULFONAMIDE [Concomitant]
     Active Substance: UNSPECIFIED INGREDIENT
     Indication: PRURITUS
     Dosage: UNK
  12. TETRACAINE. [Concomitant]
     Active Substance: TETRACAINE
     Indication: PRURITUS
  13. CODEINE [Concomitant]
     Active Substance: CODEINE
     Indication: PRURITUS
  14. OXYCODONE AND ACETAMINOPHEN [Concomitant]
     Active Substance: ACETAMINOPHEN\OXYCODONE HYDROCHLORIDE
     Indication: PRURITUS
     Dosage: UNK
  15. OXYCODONE AND ACETAMINOPHEN [Concomitant]
     Active Substance: ACETAMINOPHEN\OXYCODONE HYDROCHLORIDE
     Indication: URTICARIA
  16. CLEOCIN [CLINDAMYCIN HYDROCHLORIDE] [Concomitant]
     Active Substance: CLINDAMYCIN HYDROCHLORIDE
     Indication: DIARRHOEA
     Dosage: UNK
  17. CODEINE [Concomitant]
     Active Substance: CODEINE
     Indication: URTICARIA
     Dosage: UNK
  18. MACROBID [Concomitant]
     Active Substance: NITROFURANTOIN\NITROFURANTOIN MONOHYDRATE
     Indication: DIARRHOEA
     Dosage: UNK
  19. TETRACAINE. [Concomitant]
     Active Substance: TETRACAINE
     Indication: URTICARIA
     Dosage: UNK
  20. TRAMADOL. [Concomitant]
     Active Substance: TRAMADOL
     Indication: URTICARIA
     Dosage: UNK
  21. DETROL LA [Concomitant]
     Active Substance: TOLTERODINE TARTRATE
     Dosage: 4 MG, QD
     Route: 048
  22. DARVOCET A500 [Concomitant]
     Active Substance: ACETAMINOPHEN\PROPOXYPHENE NAPSYLATE
     Indication: PRURITUS
  23. VALIUM [Concomitant]
     Active Substance: DIAZEPAM
     Indication: DEPRESSION
     Dosage: UNK

REACTIONS (1)
  - Urticaria [None]
